FAERS Safety Report 8137627-X (Version None)
Quarter: 2012Q1

REPORT INFORMATION
  Report Type: 
  Country: None (occurrence: None)
  Receive Date: 20120215
  Receipt Date: 20120210
  Transmission Date: 20120608
  Serious: No
  Sender: FDA-Public Use
  Company Number: US-PFIZER INC-2012037907

PATIENT
  Sex: Female
  Weight: 49.887 kg

DRUGS (3)
  1. PLAN B ONE-STEP [Suspect]
     Indication: CONTRACEPTION
     Dosage: 1.5 MG, 1X/DAY
     Route: 048
     Dates: start: 20120131, end: 20120131
  2. YAZ [Concomitant]
     Indication: CONTRACEPTION
     Dosage: UNK
  3. XANAX [Suspect]
     Indication: INSOMNIA
     Dosage: UNK
     Dates: start: 20120130

REACTIONS (5)
  - CONFUSIONAL STATE [None]
  - FATIGUE [None]
  - DIARRHOEA [None]
  - DIZZINESS [None]
  - NAUSEA [None]
